FAERS Safety Report 13377755 (Version 1)
Quarter: 2017Q1

REPORT INFORMATION
  Report Type: Spontaneous
  Country: JP (occurrence: JP)
  Receive Date: 20170328
  Receipt Date: 20170328
  Transmission Date: 20170429
  Serious: Yes (Hospitalization, Other)
  Sender: FDA-Public Use
  Company Number: JP-PFIZER INC-2017095313

PATIENT
  Age: 99 Year
  Sex: Male
  Weight: 46.8 kg

DRUGS (1)
  1. ZYVOX [Suspect]
     Active Substance: LINEZOLID
     Indication: PNEUMONIA
     Dosage: 1200 MG, 2X/DAY
     Route: 041
     Dates: start: 20170208, end: 20170223

REACTIONS (3)
  - Gastric ulcer [Unknown]
  - Product use issue [Unknown]
  - Pancytopenia [Recovered/Resolved]

NARRATIVE: CASE EVENT DATE: 20170216
